FAERS Safety Report 7884011-X (Version None)
Quarter: 2011Q4

REPORT INFORMATION
  Report Type: 
  Country: None (occurrence: None)
  Receive Date: 20111102
  Receipt Date: 20111027
  Transmission Date: 20120403
  Serious: Yes (Death, Hospitalization, Other)
  Sender: FDA-Public Use
  Company Number: PHEH2011US02979

PATIENT
  Sex: Female
  Weight: 50 kg

DRUGS (2)
  1. GLEEVEC [Suspect]
     Indication: CHRONIC MYELOID LEUKAEMIA
     Dosage: 200 MG, DAILY
     Route: 048
     Dates: start: 20101214
  2. GLEEVEC [Suspect]
     Dosage: 400 MG, UNK
     Dates: end: 20110331

REACTIONS (2)
  - RECTAL HAEMORRHAGE [None]
  - DEATH [None]
